FAERS Safety Report 5926938-1 (Version None)
Quarter: 2008Q4

REPORT INFORMATION
  Report Type: 
  Country: None (occurrence: None)
  Receive Date: 20081021
  Receipt Date: 20081021
  Transmission Date: 20090506
  Serious: Yes (Other)
  Sender: FDA-Public Use
  Company Number: None

PATIENT
  Age: 11 Year
  Sex: Male
  Weight: 46.7205 kg

DRUGS (1)
  1. ALTABAX [Suspect]
     Indication: EXCORIATION
     Dosage: DIME SIZE 1 TIME CUTANEOUS
     Route: 003
     Dates: start: 20081020, end: 20081020

REACTIONS (7)
  - CRYING [None]
  - ERYTHEMA [None]
  - NO THERAPEUTIC RESPONSE [None]
  - PAIN [None]
  - SCREAMING [None]
  - SWELLING [None]
  - THERMAL BURN [None]
